FAERS Safety Report 11150960 (Version 1)
Quarter: 2015Q2

REPORT INFORMATION
  Report Type: Spontaneous
  Country: US (occurrence: None)
  Receive Date: 20150528
  Receipt Date: 20150528
  Transmission Date: 20150821
  Serious: Yes (Hospitalization)
  Sender: FDA-Public Use
  Company Number: 2015-001057

PATIENT
  Age: 84 Year
  Sex: Female

DRUGS (1)
  1. RISEDRONATE (RISEDRONATE SODIUM) UNKNOWN, UNKUNK [Suspect]
     Active Substance: RISEDRONATE SODIUM
     Route: 048

REACTIONS (2)
  - Femur fracture [None]
  - Stress fracture [None]
